FAERS Safety Report 5772895-0 (Version None)
Quarter: 2008Q2

REPORT INFORMATION
  Report Type: 
  Country: None (occurrence: None)
  Receive Date: 20080610
  Receipt Date: 20080530
  Transmission Date: 20081010
  Serious: Yes (Other)
  Sender: FDA-Public Use
  Company Number: 2008BI004237

PATIENT
  Sex: Female

DRUGS (1)
  1. AVONEX [Suspect]
     Indication: DRUG USE FOR UNKNOWN INDICATION
     Dosage: 15 UG; IM
     Route: 030
     Dates: start: 20070928

REACTIONS (3)
  - BREAST CANCER FEMALE [None]
  - MALAISE [None]
  - NAUSEA [None]
